FAERS Safety Report 16904906 (Version 1)
Quarter: 2019Q4

REPORT INFORMATION
  Report Type: Spontaneous
  Country: PT (occurrence: PT)
  Receive Date: 20191010
  Receipt Date: 20191010
  Transmission Date: 20200122
  Serious: Yes (Death, Other)
  Sender: FDA-Public Use
  Company Number: PT-GLAXOSMITHKLINE-PT2019169038

PATIENT
  Sex: Female

DRUGS (1)
  1. ZOREF [Suspect]
     Active Substance: CEFUROXIME AXETIL
     Indication: PRODUCT USED FOR UNKNOWN INDICATION
     Dosage: UNK

REACTIONS (3)
  - Mass [Unknown]
  - Cerebrovascular accident [Fatal]
  - Oral discomfort [Unknown]
